FAERS Safety Report 25005743 (Version 1)
Quarter: 2025Q1

REPORT INFORMATION
  Report Type: Report from Study
  Country: FR (occurrence: FR)
  Receive Date: 20250224
  Receipt Date: 20250224
  Transmission Date: 20250408
  Serious: Yes (Death)
  Sender: PFIZER
  Company Number: FR-PFIZER INC-PV202500021641

PATIENT

DRUGS (1)
  1. METHOTREXATE SODIUM [Suspect]
     Active Substance: METHOTREXATE SODIUM
     Indication: Pemphigoid
     Dates: start: 2015, end: 2020

REACTIONS (4)
  - Thrombocytopenia [Fatal]
  - Neutropenia [Fatal]
  - Diarrhoea [Fatal]
  - Skin wound [Fatal]
